FAERS Safety Report 6554649-0 (Version None)
Quarter: 2010Q1

REPORT INFORMATION
  Report Type: 
  Country: None (occurrence: None)
  Receive Date: 20100127
  Receipt Date: 20100121
  Transmission Date: 20100710
  Serious: Yes (Other)
  Sender: FDA-Public Use
  Company Number: TW-PFIZER INC-2010005632

PATIENT
  Age: 35 Year
  Sex: Female

DRUGS (1)
  1. PROVERA [Suspect]
     Dosage: UNK
     Route: 048
     Dates: start: 20080101, end: 20090901

REACTIONS (2)
  - DEPRESSION [None]
  - SUICIDE ATTEMPT [None]
